FAERS Safety Report 8182333-9 (Version None)
Quarter: 2012Q1

REPORT INFORMATION
  Report Type: 
  Country: None (occurrence: None)
  Receive Date: 20120302
  Receipt Date: 20120229
  Transmission Date: 20120608
  Serious: Yes (Other)
  Sender: FDA-Public Use
  Company Number: PHHY2011DE098874

PATIENT
  Age: 57 Year
  Sex: Female

DRUGS (1)
  1. FEMARA [Suspect]
     Indication: BREAST CANCER
     Route: 048
     Dates: start: 20110101

REACTIONS (10)
  - ARTHRALGIA [None]
  - MYALGIA [None]
  - ARRHYTHMIA [None]
  - URTICARIA [None]
  - JOINT SWELLING [None]
  - DIZZINESS [None]
  - EXTRASYSTOLES [None]
  - HOT FLUSH [None]
  - FATIGUE [None]
  - BONE PAIN [None]
